FAERS Safety Report 14612887 (Version 2)
Quarter: 2018Q2

REPORT INFORMATION
  Report Type: Spontaneous
  Country: DE (occurrence: DE)
  Receive Date: 20180308
  Receipt Date: 20180425
  Transmission Date: 20180711
  Serious: Yes (Other)
  Sender: FDA-Public Use
  Company Number: DE-DRREDDYS-USA/GER/18/0096736

PATIENT
  Age: 78 Year
  Sex: Male

DRUGS (2)
  1. CLOPIDOGREL [Suspect]
     Active Substance: CLOPIDOGREL BISULFATE
     Indication: BACK PAIN
  2. APIXABAN [Suspect]
     Active Substance: APIXABAN
     Indication: BACK PAIN

REACTIONS (2)
  - Metallosis of globe [Recovered/Resolved]
  - Spinal subarachnoid haemorrhage [Recovered/Resolved]
